FAERS Safety Report 9729394 (Version 1)
Quarter: 2013Q4

REPORT INFORMATION
  Report Type: Spontaneous
  Country: AT (occurrence: AT)
  Receive Date: 20131204
  Receipt Date: 20131204
  Transmission Date: 20140711
  Serious: Yes (Other)
  Sender: FDA-Public Use
  Company Number: AT-GE HEALTHCARE MEDICAL DIAGNOSTICS-OSCN-PR-1312S-0126

PATIENT
  Age: 31 Year
  Sex: Female
  Weight: 54 kg

DRUGS (2)
  1. OMNISCAN [Suspect]
     Indication: ARTHRITIS
     Route: 042
     Dates: start: 20131111, end: 20131111
  2. OMNISCAN [Suspect]
     Indication: DIAGNOSTIC PROCEDURE

REACTIONS (3)
  - Erythema [Recovered/Resolved]
  - Urticaria [Recovered/Resolved]
  - Pruritus [Recovered/Resolved]
